FAERS Safety Report 6326324-9 (Version None)
Quarter: 2009Q3

REPORT INFORMATION
  Report Type: 
  Country: None (occurrence: None)
  Receive Date: 20090821
  Receipt Date: 20090814
  Transmission Date: 20100115
  Serious: Yes (Other)
  Sender: FDA-Public Use
  Company Number: CHPA2009US17071

PATIENT
  Age: 40 Year
  Sex: Male
  Weight: 97.5 kg

DRUGS (1)
  1. EXCEDRIN (MIGRAINE) [Suspect]
     Indication: MIGRAINE
     Dosage: 1 DF, ONCE/SINGLE, ORAL
     Route: 048
     Dates: start: 20090809, end: 20090809

REACTIONS (2)
  - ANAPHYLACTIC SHOCK [None]
  - TUNNEL VISION [None]
